FAERS Safety Report 6197216-3 (Version None)
Quarter: 2009Q2

REPORT INFORMATION
  Report Type: 
  Country: None (occurrence: None)
  Receive Date: 20090521
  Receipt Date: 20070406
  Transmission Date: 20091009
  Serious: Yes (Hospitalization, Other)
  Sender: FDA-Public Use
  Company Number: US-ASTRAZENECA-2006UW09861

PATIENT
  Age: 19141 Day
  Sex: Male
  Weight: 121.4 kg

DRUGS (17)
  1. SEROQUEL [Suspect]
     Indication: SCHIZOPHRENIA
     Dosage: 25-300 MG
     Route: 048
     Dates: start: 20020708
  2. SEROQUEL [Suspect]
     Indication: ANXIETY
     Dosage: 25-300 MG
     Route: 048
     Dates: start: 20020708
  3. SEROQUEL [Suspect]
     Route: 048
     Dates: start: 20021211, end: 20040421
  4. SEROQUEL [Suspect]
     Route: 048
     Dates: start: 20021211, end: 20040421
  5. SEROQUEL [Suspect]
     Route: 048
     Dates: start: 20041006
  6. SEROQUEL [Suspect]
     Route: 048
     Dates: start: 20041006
  7. RISPERDAL [Concomitant]
     Route: 065
  8. ZYPREXA [Concomitant]
     Route: 065
  9. PROZAC [Concomitant]
     Route: 065
  10. TOPROL-XL [Concomitant]
     Dosage: 25 MG-100 MG, Q.D.
     Route: 048
  11. ZESTRIL [Concomitant]
     Route: 048
  12. AVANDIA [Concomitant]
     Route: 048
  13. LANTUS [Concomitant]
     Dosage: 20-50 UNIT, Q.H.
     Route: 058
  14. GLUCOVANCE [Concomitant]
     Dosage: 5/500 MG
     Route: 048
  15. DIOVAN [Concomitant]
     Dosage: 160/12.5 MG, Q.D.
     Route: 048
  16. LORAZEPAM [Concomitant]
     Route: 048
  17. CRESTOR [Concomitant]
     Route: 048

REACTIONS (16)
  - ANXIETY [None]
  - ARTHRALGIA [None]
  - BACK PAIN [None]
  - CATARACT [None]
  - CHEST PAIN [None]
  - COUGH [None]
  - DIABETIC RETINOPATHY [None]
  - DIZZINESS [None]
  - DYSPNOEA [None]
  - ESSENTIAL HYPERTENSION [None]
  - FATIGUE [None]
  - HYPERCHOLESTEROLAEMIA [None]
  - NERVOUSNESS [None]
  - OBESITY [None]
  - PYREXIA [None]
  - TYPE 2 DIABETES MELLITUS [None]
